FAERS Safety Report 5194584-6 (Version None)
Quarter: 2006Q4

REPORT INFORMATION
  Report Type: 
  Country: None (occurrence: None)
  Receive Date: 20061229
  Receipt Date: 20061218
  Transmission Date: 20070319
  Serious: Yes (Other)
  Sender: FDA-Public Use
  Company Number: US-JNJFOC-20061204467

PATIENT
  Age: 67 Year
  Sex: Female

DRUGS (9)
  1. REMICADE [Suspect]
     Indication: RHEUMATOID ARTHRITIS
  2. VITAMIN B6 [Concomitant]
  3. MTX [Concomitant]
     Indication: RHEUMATOID ARTHRITIS
  4. PREMARIN [Concomitant]
  5. SYNTHROID [Concomitant]
  6. CENTRUM SILVER [Concomitant]
  7. CALCIUM [Concomitant]
  8. VITAMIN E [Concomitant]
  9. VITAMIN D [Concomitant]

REACTIONS (2)
  - RASH [None]
  - VISUAL DISTURBANCE [None]
